FAERS Safety Report 8282081-0 (Version None)
Quarter: 2012Q2

REPORT INFORMATION
  Report Type: 
  Country: None (occurrence: None)
  Receive Date: 20120413
  Receipt Date: 20120410
  Transmission Date: 20120825
  Serious: Yes (Hospitalization)
  Sender: FDA-Public Use
  Company Number: FR-GENZYME-FLUD-1001464

PATIENT
  Age: 64 Year
  Sex: Female

DRUGS (13)
  1. COLIMYCINE [Concomitant]
     Indication: PRODUCT USED FOR UNKNOWN INDICATION
     Dosage: UNK
     Route: 065
     Dates: start: 20120301, end: 20120302
  2. FLUDARA [Suspect]
     Indication: MYELODYSPLASTIC SYNDROME
     Dosage: UNK, UNK
     Route: 065
     Dates: start: 20120303, end: 20120307
  3. NOXAFIL [Concomitant]
     Indication: PRODUCT USED FOR UNKNOWN INDICATION
     Dosage: UNK
     Route: 065
     Dates: start: 20120301, end: 20120302
  4. THYMOGLOBULIN [Suspect]
     Indication: MYELODYSPLASTIC SYNDROME
     Dosage: 7 U, ONCE
     Route: 042
     Dates: start: 20120306, end: 20120306
  5. BUSULFAN [Suspect]
     Indication: MYELODYSPLASTIC SYNDROME
     Dosage: UNK
     Route: 065
     Dates: start: 20120304, end: 20120306
  6. GENTAMICIN [Concomitant]
     Indication: PRODUCT USED FOR UNKNOWN INDICATION
     Dosage: UNK
     Route: 065
     Dates: start: 20120301, end: 20120302
  7. SOLU-MEDROL [Concomitant]
     Indication: PRODUCT USED FOR UNKNOWN INDICATION
     Dosage: UNK
     Route: 065
     Dates: start: 20120305, end: 20120307
  8. THYMOGLOBULIN [Suspect]
     Indication: BONE MARROW CONDITIONING REGIMEN
  9. VALACYCLOVIR HYDROCHLORIDE [Concomitant]
     Indication: PRODUCT USED FOR UNKNOWN INDICATION
     Dosage: UNK
     Route: 065
     Dates: start: 20120301, end: 20120302
  10. BUSULFAN [Suspect]
     Indication: BONE MARROW CONDITIONING REGIMEN
  11. BACTRIM [Concomitant]
     Indication: PRODUCT USED FOR UNKNOWN INDICATION
     Dosage: UNK
     Route: 065
     Dates: start: 20120301, end: 20120307
  12. FLUDARA [Suspect]
     Indication: BONE MARROW CONDITIONING REGIMEN
  13. MYCAMINE [Concomitant]
     Indication: PRODUCT USED FOR UNKNOWN INDICATION
     Dosage: UNK
     Route: 065
     Dates: start: 20120302, end: 20120307

REACTIONS (3)
  - HYPERTENSION [None]
  - HYPERTHERMIA [None]
  - CYTOLYTIC HEPATITIS [None]
